FAERS Safety Report 7651079-5 (Version None)
Quarter: 2011Q3

REPORT INFORMATION
  Report Type: 
  Country: None (occurrence: None)
  Receive Date: 20110802
  Receipt Date: 20110621
  Transmission Date: 20111222
  Serious: Yes (Other)
  Sender: FDA-Public Use
  Company Number: PHHY2011CA58077

PATIENT
  Sex: Female

DRUGS (3)
  1. ARTHROTEC [Concomitant]
  2. ZOLEDRONOC ACID [Suspect]
     Indication: OSTEOPOROSIS
     Dosage: 5 MG/100ML
     Route: 042
     Dates: start: 20110620
  3. CALCIUM CARBONATE [Concomitant]

REACTIONS (17)
  - DEPRESSED MOOD [None]
  - PAIN IN EXTREMITY [None]
  - CHILLS [None]
  - JOINT SWELLING [None]
  - MUSCULOSKELETAL STIFFNESS [None]
  - COUGH [None]
  - RED BLOOD CELL SEDIMENTATION RATE INCREASED [None]
  - EAR PAIN [None]
  - FEELING ABNORMAL [None]
  - ARTHRALGIA [None]
  - SWELLING [None]
  - MUSCULOSKELETAL DISCOMFORT [None]
  - INFLUENZA LIKE ILLNESS [None]
  - CHEST DISCOMFORT [None]
  - OEDEMA PERIPHERAL [None]
  - FATIGUE [None]
  - NECK PAIN [None]
